FAERS Safety Report 24969405 (Version 1)
Quarter: 2025Q1

REPORT INFORMATION
  Report Type: Spontaneous
  Country: US (occurrence: None)
  Receive Date: 20250213
  Receipt Date: 20250213
  Transmission Date: 20250408
  Serious: Yes (Other)
  Sender: FDA-CTU
  Company Number: None

PATIENT
  Age: 57 Year
  Sex: Female

DRUGS (25)
  1. AMBRISENTAN [Suspect]
     Active Substance: AMBRISENTAN
     Indication: Pulmonary hypertension
     Dosage: FREQUENCY : DAILY;?
     Route: 048
     Dates: start: 20241118, end: 20241202
  2. SILDENAFIL [Concomitant]
     Active Substance: SILDENAFIL
  3. HUMULIN N [Concomitant]
     Active Substance: INSULIN HUMAN
  4. HUMULIN R [Concomitant]
     Active Substance: INSULIN HUMAN
  5. HYDROXYCHLOROQUINE [Concomitant]
     Active Substance: HYDROXYCHLOROQUINE
  6. ALLOPURINOL [Concomitant]
     Active Substance: ALLOPURINOL
  7. GABAPENTIN [Concomitant]
     Active Substance: GABAPENTIN
  8. ASPIRIN [Concomitant]
     Active Substance: ASPIRIN
  9. ATORVASTATIN [Concomitant]
     Active Substance: ATORVASTATIN
  10. FLUOXETINE [Concomitant]
     Active Substance: FLUOXETINE HYDROCHLORIDE
  11. TORSEMIDE [Concomitant]
     Active Substance: TORSEMIDE
  12. POTASSIUM CHLORIDE [Concomitant]
     Active Substance: POTASSIUM CHLORIDE
  13. SPIRONOLACTONE [Concomitant]
     Active Substance: SPIRONOLACTONE
  14. DIGOXIN [Concomitant]
     Active Substance: DIGOXIN
  15. METOPROLOL [Concomitant]
     Active Substance: METOPROLOL
  16. CETIRIZINE [Concomitant]
     Active Substance: CETIRIZINE HYDROCHLORIDE
  17. ALVESCO HFA [Concomitant]
  18. FAMOTIDINE [Concomitant]
     Active Substance: FAMOTIDINE
  19. FOLIC ACID [Concomitant]
     Active Substance: FOLIC ACID
  20. LEVOTHYROXINE [Concomitant]
     Active Substance: LEVOTHYROXINE
  21. OXYGEN INTRANASAL [Concomitant]
  22. COLCHICINE [Concomitant]
     Active Substance: COLCHICINE
  23. VITAMINS [Concomitant]
     Active Substance: VITAMINS
  24. MELATONIN [Concomitant]
     Active Substance: MELATONIN
  25. ACETAMINOPHEN [Concomitant]
     Active Substance: ACETAMINOPHEN

REACTIONS (2)
  - Oedema [None]
  - Adverse drug reaction [None]

NARRATIVE: CASE EVENT DATE: 20250204
